FAERS Safety Report 15366858 (Version 2)
Quarter: 2019Q2

REPORT INFORMATION
  Report Type: Spontaneous
  Country: BY (occurrence: BY)
  Receive Date: 20180910
  Receipt Date: 20190419
  Transmission Date: 20190711
  Serious: Yes (Hospitalization, Other)
  Sender: FDA-Public Use
  Company Number: BY-PFIZER INC-2018360744

PATIENT
  Age: 45 Year
  Sex: Female
  Weight: 59.4 kg

DRUGS (10)
  1. MELOXICAM. [Concomitant]
     Active Substance: MELOXICAM
     Dosage: 15 MG, UNK
     Dates: start: 20180628, end: 20180725
  2. DELAMANID [Suspect]
     Active Substance: DELAMANID
     Indication: PULMONARY TUBERCULOSIS
     Dosage: 200 MG, 1X/DAY
     Route: 048
     Dates: start: 20170518
  3. EMTRICITABINE [Concomitant]
     Active Substance: EMTRICITABINE
     Indication: HIV INFECTION
     Dosage: 200 MG, UNK
  4. LINEZOLID. [Suspect]
     Active Substance: LINEZOLID
     Indication: PULMONARY TUBERCULOSIS
     Dosage: 600 MG, 1X/DAY
     Route: 048
     Dates: start: 20170518
  5. CLOFAZIMINE [Suspect]
     Active Substance: CLOFAZIMINE
     Indication: PULMONARY TUBERCULOSIS
     Dosage: 100 MG, 1X/DAY
     Route: 048
     Dates: start: 20170518
  6. BEDAQUILINE [Suspect]
     Active Substance: BEDAQUILINE
     Indication: PULMONARY TUBERCULOSIS
     Dosage: 200 MG, 1X/DAY
     Route: 048
     Dates: start: 20171129
  7. DOLUTEGRAVIR [Concomitant]
     Active Substance: DOLUTEGRAVIR
     Indication: HIV INFECTION
     Dosage: 50 MG, UNK
  8. MUCALTIN [Concomitant]
     Dosage: 50 MG, UNK
     Dates: start: 20180606, end: 20180725
  9. MELOXICAM. [Concomitant]
     Active Substance: MELOXICAM
     Dosage: 15 MG, UNK
     Dates: start: 20180606, end: 20180628
  10. TENOFOVIR [Concomitant]
     Active Substance: TENOFOVIR
     Indication: HIV INFECTION
     Dosage: 300 MG, UNK

REACTIONS (29)
  - Seizure [Unknown]
  - Respiratory failure [Unknown]
  - Hypertension [Unknown]
  - Cough [Not Recovered/Not Resolved]
  - Spondylitis [Unknown]
  - Psoriasis [Unknown]
  - Ventricular extrasystoles [Unknown]
  - Asthenia [Not Recovered/Not Resolved]
  - Hyperhidrosis [Not Recovered/Not Resolved]
  - Cor pulmonale chronic [Recovered/Resolved]
  - Dyspnoea [Not Recovered/Not Resolved]
  - Uterine leiomyoma [Recovered/Resolved]
  - Ovarian cyst [Recovered/Resolved]
  - Pseudarthrosis [Unknown]
  - Coordination abnormal [Unknown]
  - Bronchial obstruction [Recovered/Resolved]
  - Encephalopathy [Unknown]
  - Cardiomyopathy [Unknown]
  - Cardiac failure chronic [Unknown]
  - Headache [Unknown]
  - Menopause [Unknown]
  - Pulmonary tuberculosis [Unknown]
  - Joint tuberculosis [Unknown]
  - Internal fixation of fracture [Unknown]
  - Osteochondrosis [Unknown]
  - Laryngitis [Unknown]
  - Periarthritis [Unknown]
  - Supraventricular extrasystoles [Unknown]
  - Condition aggravated [Unknown]

NARRATIVE: CASE EVENT DATE: 20180628
